FAERS Safety Report 8519405-2 (Version None)
Quarter: 2012Q3

REPORT INFORMATION
  Report Type: 
  Country: None (occurrence: None)
  Receive Date: 20120718
  Receipt Date: 20120710
  Transmission Date: 20120928
  Serious: Yes (Hospitalization, Other)
  Sender: FDA-Public Use
  Company Number: DE-TEVA-344252GER

PATIENT
  Sex: Female

DRUGS (1)
  1. COPAXONE [Suspect]
     Indication: MULTIPLE SCLEROSIS
     Dosage: 20 MILLIGRAM;
     Route: 058
     Dates: start: 20110501, end: 20120704

REACTIONS (5)
  - DYSPNOEA [None]
  - POST PROCEDURAL COMPLICATION [None]
  - IMPAIRED HEALING [None]
  - THYROID CANCER [None]
  - THYROID DISORDER [None]
